FAERS Safety Report 11755030 (Version 2)
Quarter: 2015Q4

REPORT INFORMATION
  Report Type: Spontaneous
  Country: US (occurrence: US)
  Receive Date: 20151119
  Receipt Date: 20151123
  Transmission Date: 20160304
  Serious: Yes (Other)
  Sender: FDA-Public Use
  Company Number: US-PFIZER INC-2015389384

PATIENT
  Age: 81 Year
  Sex: Male
  Weight: 81 kg

DRUGS (2)
  1. LYRICA [Suspect]
     Active Substance: PREGABALIN
     Indication: HERPES ZOSTER
     Dosage: 75 MG, 2X/DAY
     Route: 048
     Dates: start: 201505, end: 20151101
  2. DONEPEZIL. [Concomitant]
     Active Substance: DONEPEZIL
     Indication: SENILE DEMENTIA
     Dosage: 10 MG, DAILY

REACTIONS (2)
  - Chronic kidney disease [Unknown]
  - Tic [Recovering/Resolving]

NARRATIVE: CASE EVENT DATE: 201509
